FAERS Safety Report 14308953 (Version 7)
Quarter: 2018Q2

REPORT INFORMATION
  Report Type: Spontaneous
  Country: JP (occurrence: JP)
  Receive Date: 20171220
  Receipt Date: 20180605
  Transmission Date: 20180711
  Serious: Yes (Hospitalization, Other)
  Sender: FDA-Public Use
  Company Number: JP-GLAXOSMITHKLINE-JP2017JPN193566

PATIENT
  Age: 6 Decade
  Sex: Male

DRUGS (6)
  1. LAMICTAL [Suspect]
     Active Substance: LAMOTRIGINE
     Indication: BIPOLAR DISORDER
     Dosage: UNK
     Route: 048
  2. LAMICTAL [Suspect]
     Active Substance: LAMOTRIGINE
     Dosage: 50 MG, QD
     Route: 048
     Dates: start: 20170807, end: 20170910
  3. MIRTAZAPINE. [Concomitant]
     Active Substance: MIRTAZAPINE
  4. LAMICTAL [Suspect]
     Active Substance: LAMOTRIGINE
     Dosage: 25 MG, QOD
     Route: 048
     Dates: start: 20170703, end: 20170723
  5. LAMICTAL [Suspect]
     Active Substance: LAMOTRIGINE
     Dosage: 25 MG, QD
     Route: 048
     Dates: start: 20170724, end: 20170806
  6. LAMICTAL [Suspect]
     Active Substance: LAMOTRIGINE
     Dosage: 75 MG, 1D
     Route: 048
     Dates: start: 20170911, end: 2017

REACTIONS (14)
  - Depressed level of consciousness [Unknown]
  - Fall [Unknown]
  - Skin exfoliation [Recovered/Resolved]
  - Suicidal ideation [Unknown]
  - Suicide attempt [Unknown]
  - Stupor [Unknown]
  - Limb injury [Recovering/Resolving]
  - Depressive symptom [Unknown]
  - Skin ulcer [Recovered/Resolved]
  - Altered state of consciousness [Unknown]
  - Postoperative wound infection [Recovering/Resolving]
  - Insomnia [Unknown]
  - Irritability [Unknown]
  - Intentional overdose [Unknown]

NARRATIVE: CASE EVENT DATE: 2017
